FAERS Safety Report 7056471-8 (Version None)
Quarter: 2010Q4

REPORT INFORMATION
  Report Type: 
  Country: None (occurrence: None)
  Receive Date: 20101021
  Receipt Date: 20101008
  Transmission Date: 20110411
  Serious: Yes (Hospitalization)
  Sender: FDA-Public Use
  Company Number: DE-GENENTECH-308272

PATIENT
  Sex: Male

DRUGS (3)
  1. LUCENTIS [Suspect]
     Indication: MACULAR DEGENERATION
     Dosage: UNK
     Route: 031
     Dates: start: 20100806
  2. LUCENTIS [Suspect]
     Dosage: UNK
     Route: 031
     Dates: start: 20100903
  3. LUCENTIS [Suspect]
     Dosage: UNK
     Route: 031
     Dates: start: 20101001

REACTIONS (1)
  - EYE INFLAMMATION [None]
